FAERS Safety Report 22193251 (Version 1)
Quarter: 2023Q2

REPORT INFORMATION
  Report Type: Spontaneous
  Country: JP (occurrence: JP)
  Receive Date: 20230410
  Receipt Date: 20230410
  Transmission Date: 20230721
  Serious: Yes (Other)
  Sender: FDA-Public Use
  Company Number: JP-PFIZER INC-PV202300065340

PATIENT
  Age: 91 Year
  Sex: Female
  Weight: 38 kg

DRUGS (5)
  1. FOSPHENYTOIN SODIUM [Suspect]
     Active Substance: FOSPHENYTOIN SODIUM
     Indication: Seizure
     Dosage: 250 MG, 1X/DAY
     Route: 041
     Dates: start: 20221121, end: 20221209
  2. LEVETIRACETAM [Suspect]
     Active Substance: LEVETIRACETAM
     Indication: Seizure
     Dosage: 500 MG,12 HR (DRY SYRUP)
     Route: 048
     Dates: start: 20221128, end: 20221205
  3. IOPAMIDOL [Suspect]
     Active Substance: IOPAMIDOL
     Indication: Investigation
     Dosage: 300 MG
     Route: 065
     Dates: start: 20221202, end: 20221202
  4. AMLODIPINE BESYLATE\IRBESARTAN [Concomitant]
     Active Substance: AMLODIPINE BESYLATE\IRBESARTAN
     Dosage: UNK
     Route: 065
     Dates: start: 20221124, end: 20221207
  5. ACETAMINOPHEN [Concomitant]
     Active Substance: ACETAMINOPHEN
     Dosage: UNK
     Route: 042

REACTIONS (1)
  - Drug eruption [Recovering/Resolving]

NARRATIVE: CASE EVENT DATE: 20221204
